FAERS Safety Report 11534066 (Version 3)
Quarter: 2016Q2

REPORT INFORMATION
  Report Type: Spontaneous
  Country: GB (occurrence: GB)
  Receive Date: 20150922
  Receipt Date: 20160609
  Transmission Date: 20160815
  Serious: Yes (Other)
  Sender: FDA-Public Use
  Company Number: GB-ROCHE-1636863

PATIENT
  Sex: Female

DRUGS (4)
  1. AVASTIN [Suspect]
     Active Substance: BEVACIZUMAB
     Indication: PRODUCT USED FOR UNKNOWN INDICATION
     Route: 065
  2. NEULASTA [Concomitant]
     Active Substance: PEGFILGRASTIM
     Route: 065
  3. CARBOPLATIN. [Concomitant]
     Active Substance: CARBOPLATIN
  4. CAELYX [Concomitant]
     Active Substance: DOXORUBICIN HYDROCHLORIDE

REACTIONS (8)
  - Pain [Unknown]
  - Protein urine present [Unknown]
  - Mouth ulceration [Unknown]
  - Pulmonary oedema [Unknown]
  - Fatigue [Unknown]
  - Dry skin [Unknown]
  - Dyspnoea [Unknown]
  - Herpes zoster [Unknown]
